FAERS Safety Report 18122941 (Version 2)
Quarter: 2020Q3

REPORT INFORMATION
  Report Type: Spontaneous
  Country: US (occurrence: US)
  Receive Date: 20200807
  Receipt Date: 20200905
  Transmission Date: 20201103
  Serious: Yes (Other)
  Sender: FDA-Public Use
  Company Number: US-TORRENT-00010322

PATIENT
  Age: 16 Year
  Sex: Female
  Weight: 97 kg

DRUGS (3)
  1. DULOXETINE. [Concomitant]
     Active Substance: DULOXETINE
     Indication: PRODUCT USED FOR UNKNOWN INDICATION
     Route: 048
  2. CLONIDINE. [Concomitant]
     Active Substance: CLONIDINE
     Indication: PRODUCT USED FOR UNKNOWN INDICATION
     Dosage: 0.1 EVERY MORNING
     Route: 048
  3. OLANZAPINE. [Suspect]
     Active Substance: OLANZAPINE
     Indication: PRODUCT USED FOR UNKNOWN INDICATION
     Dosage: 20 MG TOTAL DAILY DOSE FOR 4 TO 5 DAYS/WEEK FOR SEVERAL MONTHS

REACTIONS (2)
  - Drug withdrawal syndrome [Recovered/Resolved]
  - Oculogyric crisis [Recovered/Resolved]
